FAERS Safety Report 4897201-5 (Version None)
Quarter: 2005Q4

REPORT INFORMATION
  Report Type: 
  Country: None (occurrence: None)
  Receive Date: 20051223
  Receipt Date: 20051003
  Transmission Date: 20060501
  Serious: No
  Sender: FDA-Public Use
  Company Number: 05P-163-0312785-00

PATIENT
  Age: 67 Year
  Sex: Male
  Weight: 90.7194 kg

DRUGS (6)
  1. HUMIRA [Suspect]
     Indication: PSORIATIC ARTHROPATHY
     Dosage: 40 MG, 1 IN 2 WK, SUBCUTANEOUS
     Route: 058
     Dates: start: 20040901, end: 20050930
  2. METOPROLOL [Concomitant]
  3. ISOSORBIDE MONONITRATE [Concomitant]
  4. COUMADIN [Concomitant]
  5. LEVOTHYROXINE SODIUM [Concomitant]
  6. BENAZEPRIL HCL [Concomitant]

REACTIONS (1)
  - NASOPHARYNGITIS [None]
